FAERS Safety Report 9167551 (Version 2)
Quarter: 2013Q2

REPORT INFORMATION
  Report Type: Spontaneous
  Country: GB (occurrence: GB)
  Receive Date: 20130318
  Receipt Date: 20130516
  Transmission Date: 20140414
  Serious: Yes (Hospitalization)
  Sender: FDA-Public Use
  Company Number: GB-JNJFOC-20120408394

PATIENT
  Age: 8 Decade
  Sex: Female

DRUGS (2)
  1. REMICADE [Suspect]
     Indication: PSORIASIS
     Dosage: 455MG AND 460MG
     Route: 042
     Dates: start: 20120305
  2. REMICADE [Suspect]
     Indication: PSORIASIS
     Route: 042
     Dates: end: 20120319

REACTIONS (3)
  - Bronchiolitis [Recovered/Resolved]
  - Escherichia sepsis [Recovered/Resolved]
  - Myocardial infarction [Recovered/Resolved]
